FAERS Safety Report 11539839 (Version 3)
Quarter: 2015Q4

REPORT INFORMATION
  Report Type: Spontaneous
  Country: CL (occurrence: CL)
  Receive Date: 20150923
  Receipt Date: 20151210
  Transmission Date: 20160304
  Serious: Yes (Other)
  Sender: FDA-Public Use
  Company Number: CL-PFIZER INC-2015313387

PATIENT
  Sex: Female

DRUGS (2)
  1. UPLYSO [Suspect]
     Active Substance: TALIGLUCERASE ALFA
     Indication: GAUCHER^S DISEASE
     Dosage: 6000 IU, MONTHLY (3000 IU EVERY 15 DAYS)
     Dates: start: 20131105
  2. UPLYSO [Suspect]
     Active Substance: TALIGLUCERASE ALFA
     Dosage: 3200 IU, UNK

REACTIONS (3)
  - Pain [Not Recovered/Not Resolved]
  - Bone disorder [Not Recovered/Not Resolved]
  - Diarrhoea [Not Recovered/Not Resolved]
